FAERS Safety Report 22304769 (Version 1)
Quarter: 2023Q2

REPORT INFORMATION
  Report Type: Spontaneous
  Country: US (occurrence: None)
  Receive Date: 20230509
  Receipt Date: 20230509
  Transmission Date: 20230721
  Serious: Yes (unspecified)
  Sender: FDA-Public Use
  Company Number: None

PATIENT
  Age: 36 Year
  Sex: Female
  Weight: 54.9 kg

DRUGS (12)
  1. MIRTAZAPINE [Suspect]
     Active Substance: MIRTAZAPINE
     Indication: Poor quality sleep
     Dosage: FREQUENCY : AT BEDTIME;?
     Route: 048
     Dates: start: 20230327, end: 20230505
  2. MIRTAZAPINE [Suspect]
     Active Substance: MIRTAZAPINE
     Indication: Pain
  3. MIRTAZAPINE [Suspect]
     Active Substance: MIRTAZAPINE
     Indication: Attention deficit hyperactivity disorder
  4. MIRTAZAPINE [Suspect]
     Active Substance: MIRTAZAPINE
     Indication: Depression
  5. MIRTAZAPINE [Suspect]
     Active Substance: MIRTAZAPINE
     Indication: Fibromyalgia
  6. SPIRONOLACTONE [Concomitant]
     Active Substance: SPIRONOLACTONE
  7. DULOXETINE [Concomitant]
     Active Substance: DULOXETINE
  8. VERAPAMIL [Concomitant]
     Active Substance: VERAPAMIL HYDROCHLORIDE
  9. SUMATRIPTAN [Concomitant]
     Active Substance: SUMATRIPTAN
  10. CLINDAMYCIN [Concomitant]
     Active Substance: CLINDAMYCIN
  11. METHYLPHENIDATE [Concomitant]
     Active Substance: METHYLPHENIDATE
  12. LEVOTHYROXINE [Concomitant]
     Active Substance: LEVOTHYROXINE

REACTIONS (26)
  - Sleep disorder [None]
  - Somnolence [None]
  - Loss of consciousness [None]
  - Tremor [None]
  - Urinary incontinence [None]
  - Respiration abnormal [None]
  - Vomiting [None]
  - Amnesia [None]
  - Muscular weakness [None]
  - Motion sickness [None]
  - Nasopharyngitis [None]
  - Cystitis [None]
  - Nausea [None]
  - Hypophagia [None]
  - Migraine [None]
  - Musculoskeletal stiffness [None]
  - Heart rate increased [None]
  - Parosmia [None]
  - Tinnitus [None]
  - Facial pain [None]
  - Blister [None]
  - Pain [None]
  - Itching scar [None]
  - Disorientation [None]
  - Irregular sleep phase [None]
  - Mental impairment [None]

NARRATIVE: CASE EVENT DATE: 20230331
